FAERS Safety Report 11853676 (Version 2)
Quarter: 2016Q4

REPORT INFORMATION
  Report Type: Spontaneous
  Country: US (occurrence: US)
  Receive Date: 20151219
  Receipt Date: 20161222
  Transmission Date: 20170206
  Serious: No
  Sender: FDA-Public Use
  Company Number: US-BAUSCH-BL-2015-020429

PATIENT
  Sex: Female

DRUGS (1)
  1. XENAZINE [Suspect]
     Active Substance: TETRABENAZINE
     Indication: HUNTINGTON^S DISEASE
     Route: 048
     Dates: start: 20150623

REACTIONS (10)
  - Feeling jittery [Unknown]
  - Thinking abnormal [Unknown]
  - Soliloquy [Unknown]
  - Condition aggravated [Unknown]
  - Insomnia [Unknown]
  - Dyskinesia [Unknown]
  - Depressed mood [Unknown]
  - Aggression [Unknown]
  - Drug administration error [Unknown]
  - Agitation [Unknown]
